FAERS Safety Report 4896214-7 (Version None)
Quarter: 2006Q1

REPORT INFORMATION
  Report Type: 
  Country: None (occurrence: None)
  Receive Date: 20060126
  Receipt Date: 20060113
  Transmission Date: 20060701
  Serious: Yes (Other)
  Sender: FDA-Public Use
  Company Number: 2006008549

PATIENT
  Sex: Male

DRUGS (3)
  1. LIPITOR [Suspect]
     Indication: BLOOD CHOLESTEROL
     Dosage: (10 MG, 1 IN 1 D)
  2. ALTACE [Concomitant]
  3. ALLEGRA [Concomitant]

REACTIONS (5)
  - CATARACT [None]
  - CONSTIPATION [None]
  - DIABETES MELLITUS NON-INSULIN-DEPENDENT [None]
  - HERNIA REPAIR [None]
  - HYPOTHYROIDISM [None]
